FAERS Safety Report 8458755 (Version 5)
Quarter: 2013Q1

REPORT INFORMATION
  Report Type: Spontaneous
  Country: US (occurrence: US)
  Receive Date: 20120314
  Receipt Date: 20130205
  Transmission Date: 20140127
  Serious: Yes (Other)
  Sender: FDA-Public Use
  Company Number: US-ASTRAZENECA-2012SE12980

PATIENT
  Age: 62 Year
  Sex: Female

DRUGS (7)
  1. NEXIUM [Suspect]
     Indication: GASTROOESOPHAGEAL REFLUX DISEASE
     Route: 048
  2. NEXIUM [Suspect]
     Indication: GASTROOESOPHAGEAL REFLUX DISEASE
     Route: 048
  3. NEXIUM [Suspect]
     Indication: HIATUS HERNIA
     Route: 048
  4. PRILOSEC [Suspect]
     Route: 048
  5. CRESTOR [Suspect]
     Route: 048
  6. TUMS [Concomitant]
     Indication: ABDOMINAL DISCOMFORT
  7. PEPSONDENT [Concomitant]
     Dosage: GENERIC, AT NIGHT

REACTIONS (16)
  - Bone density decreased [Unknown]
  - Gastric polyps [Unknown]
  - Macular degeneration [Unknown]
  - Osteoporosis [Unknown]
  - Gastrooesophageal reflux disease [Unknown]
  - Stress [Unknown]
  - Fall [Unknown]
  - Arthropathy [Unknown]
  - Muscle spasms [Unknown]
  - Malaise [Unknown]
  - Abdominal pain upper [Unknown]
  - Headache [Unknown]
  - Abdominal discomfort [Unknown]
  - Pain [Unknown]
  - Intentional drug misuse [Unknown]
  - Drug ineffective [Unknown]
